FAERS Safety Report 9898170 (Version 2)
Quarter: 2014Q1

REPORT INFORMATION
  Report Type: Spontaneous
  Country: US (occurrence: US)
  Receive Date: 20140214
  Receipt Date: 20140214
  Transmission Date: 20141002
  Serious: No
  Sender: FDA-Public Use
  Company Number: US-GILEAD-2011-0041097

PATIENT
  Sex: Female

DRUGS (23)
  1. LETAIRIS [Suspect]
     Indication: PULMONARY HYPERTENSION
     Route: 048
     Dates: start: 20110412, end: 20110607
  2. LETAIRIS [Suspect]
     Indication: INTERSTITIAL LUNG DISEASE
  3. LETAIRIS [Suspect]
     Indication: DERMATOMYOSITIS
  4. ASPIRIN [Concomitant]
  5. COZAAR [Concomitant]
  6. CRESTOR [Concomitant]
  7. METOPROLOL SUCCINATE [Concomitant]
  8. IPRATROPIUM BROMIDE/SALBUTAMOL SULFATE [Concomitant]
  9. PREDNISONE [Concomitant]
  10. LASIX [Concomitant]
  11. METHOTREXATE [Concomitant]
  12. OXYCODONE [Concomitant]
  13. NEURONTIN [Concomitant]
  14. TYLENOL EXTRA STRENGTH [Concomitant]
  15. PREVACID [Concomitant]
  16. BENADRYL [Concomitant]
  17. DETROL LA [Concomitant]
  18. VALTREX [Concomitant]
  19. ALENDRONATE SODIUM [Concomitant]
  20. FOLIC ACID [Concomitant]
  21. KLOR-CON [Concomitant]
  22. CALCIUM + D [Concomitant]
  23. IRON [Concomitant]

REACTIONS (2)
  - Wheezing [Recovered/Resolved]
  - Dyspnoea [Recovered/Resolved]
